FAERS Safety Report 6504175-X (Version None)
Quarter: 2009Q4

REPORT INFORMATION
  Report Type: 
  Country: None (occurrence: None)
  Receive Date: 20091217
  Receipt Date: 20091207
  Transmission Date: 20100525
  Serious: Yes (Death, Hospitalization, Other)
  Sender: FDA-Public Use
  Company Number: GB-ABBOTT-09P-167-0608307-00

PATIENT
  Sex: Female
  Weight: 71 kg

DRUGS (21)
  1. ZEMPLAR [Suspect]
     Indication: HYPERPARATHYROIDISM
     Route: 042
     Dates: start: 20060501, end: 20070901
  2. EPREX [Concomitant]
     Indication: ANAEMIA
     Route: 042
     Dates: start: 20070701, end: 20070901
  3. BISOPROLOL [Concomitant]
     Indication: TACHYCARDIA
     Route: 048
     Dates: start: 20060501, end: 20070801
  4. CALCIUM CARBONATE [Concomitant]
     Indication: HYPERPHOSPHATAEMIA
     Route: 048
     Dates: start: 20040701, end: 20070901
  5. VANCOMYCIN [Concomitant]
     Indication: INFECTION
     Route: 042
     Dates: start: 20070817, end: 20070817
  6. GENTAMICIN [Concomitant]
     Indication: INFECTION
     Route: 042
     Dates: start: 20070824
  7. DICLOFENAC SODIUM [Concomitant]
     Indication: DRUG USE FOR UNKNOWN INDICATION
     Dates: start: 20070817
  8. FLUOXETINE [Concomitant]
     Indication: DRUG USE FOR UNKNOWN INDICATION
     Dates: start: 20070817
  9. DIAZEPAM [Concomitant]
     Indication: DRUG USE FOR UNKNOWN INDICATION
     Dates: start: 20070817
  10. ASPIRIN [Concomitant]
     Indication: DRUG USE FOR UNKNOWN INDICATION
  11. CLOPIDOGREL [Concomitant]
     Indication: DRUG USE FOR UNKNOWN INDICATION
  12. CLEXANE [Concomitant]
     Indication: DRUG USE FOR UNKNOWN INDICATION
  13. LANSOPRAZOLE [Concomitant]
     Indication: DRUG USE FOR UNKNOWN INDICATION
     Dosage: 30 MG
  14. NITROGLYCERIN [Concomitant]
     Indication: DRUG USE FOR UNKNOWN INDICATION
     Dosage: INFUSION
  15. SIMVASTATIN [Concomitant]
     Indication: DRUG USE FOR UNKNOWN INDICATION
     Dosage: 20 MG
  16. ATENOLOL [Concomitant]
     Indication: DRUG USE FOR UNKNOWN INDICATION
  17. ISOSORBIDE MONONITRATE [Concomitant]
     Indication: DRUG USE FOR UNKNOWN INDICATION
  18. REMAGEL [Concomitant]
     Indication: DRUG USE FOR UNKNOWN INDICATION
  19. AUGMENTIN [Concomitant]
     Indication: INFECTION
     Dates: start: 20070821
  20. MORPHINE [Concomitant]
     Indication: POSTOPERATIVE ANALGESIA
     Dates: start: 20070824
  21. ACYCLOVIR [Concomitant]
     Indication: HERPES SIMPLEX
     Route: 042
     Dates: start: 20070830

REACTIONS (12)
  - ACUTE MYOCARDIAL INFARCTION [None]
  - ARTICULAR CALCIFICATION [None]
  - BACTERIAL INFECTION [None]
  - BLOOD CULTURE POSITIVE [None]
  - CANDIDIASIS [None]
  - CEREBRAL INFARCTION [None]
  - CEREBROVASCULAR ACCIDENT [None]
  - DEMYELINATION [None]
  - ESCHERICHIA INFECTION [None]
  - PULMONARY CONGESTION [None]
  - VASCULITIS CEREBRAL [None]
  - WOUND INFECTION [None]
